FAERS Safety Report 7539402-3 (Version None)
Quarter: 2011Q2

REPORT INFORMATION
  Report Type: 
  Country: None (occurrence: None)
  Receive Date: 20110610
  Receipt Date: 20110525
  Transmission Date: 20111010
  Serious: Yes (Other)
  Sender: FDA-Public Use
  Company Number: US-BAYER-2011-049493

PATIENT
  Sex: Male

DRUGS (1)
  1. HELIXATE FS [Suspect]
     Indication: FACTOR VIII DEFICIENCY

REACTIONS (1)
  - ANTI FACTOR VIII ANTIBODY TEST [None]
